FAERS Safety Report 10406689 (Version 8)
Quarter: 2015Q4

REPORT INFORMATION
  Report Type: Spontaneous
  Country: US (occurrence: US)
  Receive Date: 20140825
  Receipt Date: 20151222
  Transmission Date: 20160304
  Serious: No
  Sender: FDA-Public Use
  Company Number: US-PFIZER INC-2014233231

PATIENT
  Age: 51 Year
  Sex: Male
  Weight: 122.45 kg

DRUGS (4)
  1. XANAX [Concomitant]
     Active Substance: ALPRAZOLAM
     Indication: ANXIETY
     Dosage: UNK
  2. IMODIUM [Concomitant]
     Active Substance: LOPERAMIDE HYDROCHLORIDE
     Dosage: UNK, AS NEEDED
  3. SUTENT [Suspect]
     Active Substance: SUNITINIB MALATE
     Indication: METASTATIC RENAL CELL CARCINOMA
     Dosage: 50 MG, CYCLIC (28 DAYS ON AND 14 OFF)
     Dates: start: 20120806
  4. GEMFIBROZIL. [Concomitant]
     Active Substance: GEMFIBROZIL
     Dosage: UNK

REACTIONS (20)
  - Blood pressure increased [Not Recovered/Not Resolved]
  - Anaemia [Unknown]
  - Weight increased [Recovering/Resolving]
  - Fatigue [Not Recovered/Not Resolved]
  - Goitre [Unknown]
  - Lethargy [Not Recovered/Not Resolved]
  - Diarrhoea [Not Recovered/Not Resolved]
  - Hyperhidrosis [Unknown]
  - Abdominal discomfort [Unknown]
  - Dehydration [Unknown]
  - Anxiety [Unknown]
  - Agitation [Unknown]
  - Nausea [Unknown]
  - Temperature intolerance [Unknown]
  - Thyroid disorder [Unknown]
  - Headache [Unknown]
  - Pain in extremity [Unknown]
  - Gout [Unknown]
  - Depression [Unknown]
  - Thyroid function test abnormal [Unknown]
